FAERS Safety Report 23559432 (Version 3)
Quarter: 2024Q1

REPORT INFORMATION
  Report Type: Spontaneous
  Country: US (occurrence: US)
  Receive Date: 20240223
  Receipt Date: 20240322
  Transmission Date: 20240409
  Serious: Yes (Other)
  Sender: FDA-Public Use
  Company Number: US-Blueprint Medicines Corporation-2409

PATIENT
  Age: 68 Year
  Sex: Male

DRUGS (3)
  1. AYVAKIT [Suspect]
     Active Substance: AVAPRITINIB
     Indication: Gastrointestinal stromal tumour
     Route: 048
     Dates: start: 20231122
  2. AYVAKIT [Suspect]
     Active Substance: AVAPRITINIB
     Indication: Malignant connective tissue neoplasm
     Route: 048
     Dates: start: 20231122
  3. AYVAKIT [Suspect]
     Active Substance: AVAPRITINIB
     Indication: Soft tissue sarcoma
     Route: 048
     Dates: start: 20231122

REACTIONS (11)
  - Neuropathy peripheral [Not Recovered/Not Resolved]
  - Swelling face [Not Recovered/Not Resolved]
  - Periorbital swelling [Not Recovered/Not Resolved]
  - Adverse drug reaction [Unknown]
  - Hypoaesthesia [Not Recovered/Not Resolved]
  - Peripheral coldness [Not Recovered/Not Resolved]
  - Nail discolouration [Not Recovered/Not Resolved]
  - Skin discolouration [Not Recovered/Not Resolved]
  - Dyspnoea [Not Recovered/Not Resolved]
  - Myalgia [Not Recovered/Not Resolved]
  - Muscle tightness [Not Recovered/Not Resolved]

NARRATIVE: CASE EVENT DATE: 20240201
